FAERS Safety Report 6873545-2 (Version None)
Quarter: 2010Q3

REPORT INFORMATION
  Report Type: 
  Country: None (occurrence: None)
  Receive Date: 20100723
  Receipt Date: 20090226
  Transmission Date: 20110219
  Serious: No
  Sender: FDA-Public Use
  Company Number: US-PFIZER INC-2009156501

PATIENT
  Sex: Male
  Weight: 79.378 kg

DRUGS (1)
  1. CHANTIX [Suspect]
     Indication: SMOKING CESSATION THERAPY
     Dosage: UNK
     Dates: start: 20080901, end: 20090101

REACTIONS (2)
  - DRUG WITHDRAWAL SYNDROME [None]
  - NO ADVERSE EVENT [None]
